FAERS Safety Report 6241632-8 (Version None)
Quarter: 2009Q2

REPORT INFORMATION
  Report Type: 
  Country: None (occurrence: None)
  Receive Date: 20090623
  Receipt Date: 20041008
  Transmission Date: 20091009
  Serious: Yes (Hospitalization)
  Sender: FDA-Public Use
  Company Number: CZ-ROCHE-422311

PATIENT
  Sex: Female
  Weight: 60.5 kg

DRUGS (68)
  1. DACLIZUMAB [Suspect]
     Dosage: DOSE: AS PER PROTOCOL.
     Route: 042
  2. DACLIZUMAB [Suspect]
     Dosage: DOSE: AS PER PROTOCOL.
     Route: 042
  3. MYCOPHENOLATE MOFETIL [Suspect]
     Route: 048
     Dates: start: 20031019
  4. MYCOPHENOLATE MOFETIL [Suspect]
     Route: 048
     Dates: start: 20031126, end: 20031210
  5. MYCOPHENOLATE MOFETIL [Suspect]
     Route: 048
     Dates: start: 20040112
  6. MYCOPHENOLATE MOFETIL [Suspect]
     Route: 048
     Dates: start: 20040526
  7. MYCOPHENOLATE MOFETIL [Suspect]
     Route: 048
     Dates: start: 20041026
  8. CYCLOSPORINE [Suspect]
     Route: 048
     Dates: start: 20031018
  9. CYCLOSPORINE [Suspect]
     Dosage: CYCLOSPORINE A
     Route: 048
     Dates: start: 20031024
  10. CYCLOSPORINE [Suspect]
     Route: 048
     Dates: start: 20031209
  11. CYCLOSPORINE [Suspect]
     Route: 048
     Dates: start: 20031211
  12. CYCLOSPORINE [Suspect]
     Route: 048
     Dates: start: 20031230
  13. CYCLOSPORINE [Suspect]
     Route: 048
     Dates: start: 20040120
  14. CYCLOSPORINE [Suspect]
     Route: 048
     Dates: start: 20040225
  15. CYCLOSPORINE [Suspect]
     Route: 048
     Dates: start: 20040323
  16. CYCLOSPORINE [Suspect]
     Route: 048
     Dates: start: 20040420
  17. CYCLOSPORINE [Suspect]
     Route: 048
     Dates: start: 20040928, end: 20041026
  18. TACROLIMUS [Suspect]
     Route: 048
     Dates: start: 20041026
  19. TACROLIMUS [Suspect]
     Route: 048
     Dates: start: 20041102
  20. METHYLPREDNISOLONE [Suspect]
     Route: 042
     Dates: start: 20031128
  21. METHYLPREDNISOLONE [Suspect]
     Route: 042
     Dates: start: 20031201
  22. METHYLPREDNISOLONE [Suspect]
     Route: 042
     Dates: start: 20031204
  23. METHYLPREDNISOLONE [Suspect]
     Route: 042
     Dates: start: 20040323
  24. METHYLPREDNISOLONE [Suspect]
     Route: 042
     Dates: start: 20040326
  25. METHYLPREDNISOLONE [Suspect]
     Route: 042
     Dates: start: 20040329, end: 20040401
  26. PREDNISONE [Suspect]
     Dosage: DRUG: PREDNISON
     Route: 048
     Dates: start: 20031021
  27. PREDNISONE [Suspect]
     Route: 048
     Dates: start: 20031126
  28. PREDNISONE [Suspect]
     Route: 048
     Dates: start: 20031128, end: 20031129
  29. PREDNISONE [Suspect]
     Route: 048
     Dates: start: 20031207
  30. PREDNISONE [Suspect]
     Route: 048
     Dates: start: 20031211
  31. PREDNISONE [Suspect]
     Route: 048
     Dates: start: 20040113, end: 20040329
  32. PREDNISONE [Suspect]
     Route: 048
     Dates: start: 20040401
  33. PREDNISONE [Suspect]
     Route: 048
     Dates: start: 20040416
  34. PREDNISONE [Suspect]
     Route: 048
     Dates: start: 20040420
  35. PREDNISONE [Suspect]
     Route: 048
     Dates: start: 20040512
  36. RANITIDINE HCL [Concomitant]
     Route: 048
     Dates: start: 20031018, end: 20040329
  37. ALLOPURINOL [Concomitant]
     Route: 048
     Dates: start: 20031027, end: 20040217
  38. ALLOPURINOL [Concomitant]
     Route: 048
     Dates: start: 20041101
  39. ANOPYRIN [Concomitant]
     Route: 048
     Dates: start: 20031028, end: 20031127
  40. AMARYL [Concomitant]
     Dates: start: 20031001
  41. BISEPTOL [Concomitant]
     Dates: start: 20031019
  42. GLIMEPIRIDE [Concomitant]
     Route: 048
     Dates: start: 20031117, end: 20031126
  43. CEFEPIME [Concomitant]
     Dosage: DRUG REPORTEDA AS CEFEPIM
     Route: 042
     Dates: start: 20040403, end: 20040414
  44. CIPROFLOXACIN [Concomitant]
     Route: 048
     Dates: start: 20031126, end: 20031204
  45. CIPROFLOXACIN [Concomitant]
     Route: 042
     Dates: start: 20040331, end: 20040405
  46. CITALOPRAM HYDROBROMIDE [Concomitant]
     Route: 048
     Dates: start: 20031126
  47. COTRIM [Concomitant]
     Route: 048
     Dates: start: 20031025, end: 20031126
  48. COTRIM [Concomitant]
     Route: 048
     Dates: start: 20031211, end: 20031223
  49. COTRIM [Concomitant]
     Route: 048
     Dates: start: 20040218, end: 20040409
  50. COTRIM [Concomitant]
     Route: 048
     Dates: start: 20041130, end: 20041210
  51. COTRIM [Concomitant]
     Route: 048
     Dates: start: 20050117, end: 20050215
  52. FELODIPINE [Concomitant]
     Route: 048
     Dates: start: 20031202
  53. FERROSI SULFAS [Concomitant]
     Route: 048
     Dates: start: 20050216
  54. FLUCONAZOLE [Concomitant]
     Route: 042
     Dates: start: 20031210, end: 20031223
  55. FUROSEMID [Concomitant]
     Route: 048
     Dates: start: 20040420, end: 20040517
  56. FUROSEMID [Concomitant]
     Route: 048
     Dates: start: 20040525
  57. FUROSEMID [Concomitant]
     Route: 048
     Dates: start: 20040614
  58. FUROSEMID [Concomitant]
     Route: 048
     Dates: start: 20040823, end: 20040823
  59. FUROSEMID [Concomitant]
     Route: 048
     Dates: start: 20040927
  60. GANCYKLOVIR [Concomitant]
     Route: 042
     Dates: start: 20031210
  61. GANCYKLOVIR [Concomitant]
     Route: 048
     Dates: start: 20031223, end: 20040131
  62. IMIPENEM [Concomitant]
     Route: 042
     Dates: start: 20031208, end: 20031223
  63. INSULIN [Concomitant]
     Route: 058
     Dates: start: 20031126
  64. METOPROLOL SUCCINATE [Concomitant]
     Route: 048
     Dates: start: 20040517
  65. OMEPRAZOL [Concomitant]
     Route: 048
     Dates: start: 20040323
  66. RALOXIFENE HCL [Concomitant]
     Dosage: DRUG: RALOXIFEN
     Route: 048
     Dates: start: 20031229
  67. RILMENIDINE [Concomitant]
     Dosage: DRUG: RILMENIDIN
     Route: 048
     Dates: start: 20040927
  68. SIMVASTATIN [Concomitant]
     Route: 048
     Dates: start: 20031209

REACTIONS (1)
  - BRONCHOPNEUMONIA [None]
